FAERS Safety Report 7917252-3 (Version None)
Quarter: 2011Q4

REPORT INFORMATION
  Report Type: 
  Country: None (occurrence: None)
  Receive Date: 20111114
  Receipt Date: 20111031
  Transmission Date: 20120403
  Serious: Yes (Death, Hospitalization)
  Sender: FDA-Public Use
  Company Number: 1098346

PATIENT
  Age: 66 Year
  Sex: Male

DRUGS (2)
  1. DOCETAXEL [Suspect]
     Indication: PROSTATE CANCER
  2. ZOLEDRONIC ACID [Suspect]
     Indication: PROSTATE CANCER

REACTIONS (6)
  - HAEMOLYTIC URAEMIC SYNDROME [None]
  - RENAL FAILURE [None]
  - MENTAL STATUS CHANGES [None]
  - NORMOCHROMIC NORMOCYTIC ANAEMIA [None]
  - DIALYSIS [None]
  - THROMBOTIC THROMBOCYTOPENIC PURPURA [None]
